FAERS Safety Report 6804373-1 (Version None)
Quarter: 2010Q2

REPORT INFORMATION
  Report Type: 
  Country: None (occurrence: None)
  Receive Date: 20100628
  Receipt Date: 20070430
  Transmission Date: 20101027
  Serious: Yes (Other)
  Sender: FDA-Public Use
  Company Number: US-PFIZER INC-2007012173

PATIENT
  Sex: Male
  Weight: 80.7 kg

DRUGS (8)
  1. CADUET [Suspect]
     Indication: HYPERTENSION
  2. CADUET [Suspect]
     Indication: HYPERLIPIDAEMIA
  3. ACETYLSALICYLIC ACID [Concomitant]
  4. CLOPIDOGREL [Concomitant]
  5. FUROSEMIDE [Concomitant]
  6. METOPROLOL [Concomitant]
  7. GLIPIZIDE [Concomitant]
     Indication: DIABETES MELLITUS
  8. DOXAZOSIN MESYLATE [Concomitant]
     Indication: HYPERTENSION

REACTIONS (1)
  - HYPOTENSION [None]
